FAERS Safety Report 21233163 (Version 11)
Quarter: 2023Q4

REPORT INFORMATION
  Report Type: Other
  Country: CA (occurrence: None)
  Receive Date: 20220819
  Receipt Date: 20231106
  Transmission Date: 20240110
  Serious: No
  Sender: FDA-Public Use
  Company Number: CA-ROCHE-3164137

PATIENT
  Sex: Female

DRUGS (1)
  1. OCREVUS [Suspect]
     Active Substance: OCRELIZUMAB
     Indication: Relapsing-remitting multiple sclerosis
     Dosage: 300 MG AT DAY 0 AND 14, THEN 600 MG EVERY 6 MONTH
     Route: 042
     Dates: start: 20220414

REACTIONS (10)
  - Influenza [Recovered/Resolved]
  - Pain [Recovering/Resolving]
  - Eye pain [Recovering/Resolving]
  - Dry mouth [Not Recovered/Not Resolved]
  - Memory impairment [Not Recovered/Not Resolved]
  - Headache [Recovering/Resolving]
  - Feeling of body temperature change [Recovering/Resolving]
  - Speech disorder [Recovering/Resolving]
  - Condition aggravated [Recovered/Resolved]
  - Dry throat [Unknown]
